FAERS Safety Report 8276203-5 (Version None)
Quarter: 2012Q2

REPORT INFORMATION
  Report Type: 
  Country: None (occurrence: None)
  Receive Date: 20120412
  Receipt Date: 20120404
  Transmission Date: 20120825
  Serious: Yes (Disabling, Other)
  Sender: FDA-Public Use
  Company Number: CH-ASTELLAS-2012EU002637

PATIENT
  Age: 75 Year
  Sex: Female

DRUGS (12)
  1. AMILORIDE HCL AND HYDROCHLOROTHIAZIDE [Concomitant]
     Dosage: 1 DF, UID/QD
     Route: 065
  2. MARCUMAR [Concomitant]
     Dosage: 3 MG, PRN
     Route: 065
  3. PROGRAF [Suspect]
     Indication: RENAL TRANSPLANT
     Dosage: 1 DF, UID/QD
     Route: 048
     Dates: start: 20020101
  4. PROGRAF [Interacting]
     Dosage: 6 MG, UID/QD
     Route: 048
     Dates: start: 20110402, end: 20110408
  5. FLOXAPEN [Interacting]
     Indication: STAPHYLOCOCCAL INFECTION
     Dosage: 2 G, TID
     Route: 040
     Dates: start: 20110319, end: 20110330
  6. PROGRAF [Interacting]
     Dosage: 3 MG, UID/QD
     Route: 048
     Dates: start: 20111208
  7. ALLOPURINOL [Concomitant]
     Dosage: UNK MG, UID/QD
     Route: 065
  8. PROGRAF [Interacting]
     Dosage: 3.5 MG, UID/QD
     Route: 048
     Dates: start: 20110326, end: 20110401
  9. ZESTRIL [Concomitant]
     Dosage: 30 MG, UID/QD
     Route: 065
  10. PROGRAF [Interacting]
     Dosage: 3.5 MG, UID/QD
     Route: 048
     Dates: start: 20110325
  11. PROGRAF [Interacting]
     Dosage: 4 MG, UID/QD
     Route: 048
     Dates: start: 20110407, end: 20111208
  12. TENORMIN [Concomitant]
     Dosage: UNK
     Route: 065

REACTIONS (2)
  - RENAL FAILURE CHRONIC [None]
  - DRUG INTERACTION [None]
